FAERS Safety Report 7142261-4 (Version None)
Quarter: 2010Q4

REPORT INFORMATION
  Report Type: 
  Country: None (occurrence: None)
  Receive Date: 20101207
  Receipt Date: 20101126
  Transmission Date: 20110411
  Serious: Yes (Other)
  Sender: FDA-Public Use
  Company Number: US-B.I. PHARMACEUTICALS,INC./RIDGEFIELD-2010-BP-13664YA

PATIENT
  Age: 83 Year
  Sex: Male

DRUGS (9)
  1. TAMSULOSIN [Suspect]
     Indication: BENIGN PROSTATIC HYPERPLASIA
     Dosage: 0.4 MG
  2. TIMOLOL MALEATE [Concomitant]
     Indication: INTRAOCULAR PRESSURE TEST
  3. LATANOPROST [Concomitant]
     Indication: INTRAOCULAR PRESSURE TEST
  4. AMIODARONE HCL [Concomitant]
  5. HYDROCHLOROTHIAZIDE [Concomitant]
  6. ALLOPURINOL SODIUM (ALLOPURINOL SODIUM) [Concomitant]
  7. GLIPIZIDE [Concomitant]
  8. LISINOPRIL [Concomitant]
  9. METOPROLOL TARTRATE [Concomitant]

REACTIONS (1)
  - FLOPPY IRIS SYNDROME [None]
